FAERS Safety Report 10765248 (Version 3)
Quarter: 2016Q2

REPORT INFORMATION
  Report Type: Spontaneous
  Country: US (occurrence: US)
  Receive Date: 20150205
  Receipt Date: 20160503
  Transmission Date: 20160815
  Serious: Yes (Hospitalization, Other)
  Sender: FDA-Public Use
  Company Number: US-AMGEN-USASP2015009702

PATIENT
  Age: 56 Year
  Sex: Female

DRUGS (1)
  1. ENBREL [Suspect]
     Active Substance: ETANERCEPT
     Indication: RHEUMATOID ARTHRITIS
     Dosage: 50 MG, QWK
     Route: 065
     Dates: start: 1998

REACTIONS (24)
  - Hospitalisation [Unknown]
  - Muscle spasms [Unknown]
  - Elbow deformity [Unknown]
  - Injection site pain [Unknown]
  - Abasia [Unknown]
  - Surgery [Unknown]
  - Sepsis [Unknown]
  - Toe operation [Unknown]
  - Abdominal hernia [Unknown]
  - Pericardial effusion [Unknown]
  - Knee operation [Unknown]
  - Post procedural infection [Recovered/Resolved]
  - Joint lock [Unknown]
  - Intestinal perforation [Unknown]
  - Musculoskeletal disorder [Not Recovered/Not Resolved]
  - Pain in extremity [Recovering/Resolving]
  - Hand deformity [Unknown]
  - Pulmonary oedema [Unknown]
  - Rash [Recovered/Resolved]
  - Arthritis [Unknown]
  - Foot deformity [Unknown]
  - Fistula of small intestine [Unknown]
  - Pneumonia [Recovered/Resolved]
  - Finger deformity [Unknown]

NARRATIVE: CASE EVENT DATE: 2014
